FAERS Safety Report 7912741-X (Version None)
Quarter: 2011Q4

REPORT INFORMATION
  Report Type: 
  Country: None (occurrence: None)
  Receive Date: 20111114
  Receipt Date: 20111109
  Transmission Date: 20120403
  Serious: Yes (Life-Threatening, Hospitalization, Other)
  Sender: FDA-Public Use
  Company Number: GB-PFIZER INC-2011040827

PATIENT
  Age: 61 Year
  Sex: Female

DRUGS (9)
  1. AMOXICILLIN [Concomitant]
     Dosage: UNK
  2. PREDNISOLONE [Concomitant]
     Dosage: UNK
  3. EXEMESTANE [Suspect]
     Indication: BREAST CANCER
     Dosage: 25 MG, UNK
     Dates: start: 20100101
  4. ATORVASTATIN CALCIUM [Suspect]
     Dosage: UNK
  5. ANASTROZOLE [Suspect]
     Indication: BREAST CANCER
     Dosage: 1 MG, UNK
     Route: 048
     Dates: start: 20100101
  6. ALTACE [Suspect]
     Dosage: 1.25 MG, UNK
  7. BENDROFLUAZIDE [Suspect]
     Indication: HYPERTENSION
     Dosage: 2.5 MG, UNK
     Route: 048
  8. ATROVENT [Suspect]
     Dosage: UNK
  9. LERCANIDIPINE [Suspect]
     Dosage: UNK

REACTIONS (1)
  - HYPONATRAEMIA [None]
